FAERS Safety Report 23320351 (Version 1)
Quarter: 2023Q4

REPORT INFORMATION
  Report Type: Spontaneous
  Country: US (occurrence: US)
  Receive Date: 20231220
  Receipt Date: 20231220
  Transmission Date: 20240109
  Serious: No
  Sender: FDA-Public Use
  Company Number: US-PROVENTION BIO, INC.-US-PRAG-23-00084

PATIENT
  Age: 55 Year
  Sex: Female

DRUGS (1)
  1. TEPLIZUMAB [Suspect]
     Active Substance: TEPLIZUMAB
     Indication: Product used for unknown indication
     Dosage: 250 MICROGRAM, DAILY
     Dates: start: 20230920, end: 20230921

REACTIONS (1)
  - Cold sweat [Unknown]

NARRATIVE: CASE EVENT DATE: 20230920
